FAERS Safety Report 8805474 (Version 1)
Quarter: 2012Q4

REPORT INFORMATION
  Report Type: Spontaneous
  Country: US (occurrence: None)
  Receive Date: 20120918
  Receipt Date: 20120918
  Transmission Date: 20130627
  Serious: Yes (Life-Threatening)
  Sender: FDA-Public Use
  Company Number: None

PATIENT
  Age: 60 Year
  Weight: 81 kg

DRUGS (2)
  1. CUBICIN [Suspect]
     Indication: ABDOMINAL ABSCESS
     Dates: start: 20120902, end: 20120904
  2. CUBICIN [Suspect]
     Indication: ABDOMINAL ABSCESS
     Dates: start: 20120904, end: 20120906

REACTIONS (2)
  - Convulsion [None]
  - Blood creatinine abnormal [None]
